FAERS Safety Report 25102664 (Version 1)
Quarter: 2025Q1

REPORT INFORMATION
  Report Type: Spontaneous
  Country: US (occurrence: US)
  Receive Date: 20250321
  Receipt Date: 20250321
  Transmission Date: 20250408
  Serious: Yes (Hospitalization, Other)
  Sender: RANBAXY
  Company Number: US-SUN PHARMACEUTICAL INDUSTRIES LTD-2025R1-499392

PATIENT
  Age: 53 Year
  Sex: Male

DRUGS (2)
  1. NICARDIPINE [Suspect]
     Active Substance: NICARDIPINE
     Indication: Atrioventricular block complete
     Route: 065
  2. NICARDIPINE [Suspect]
     Active Substance: NICARDIPINE
     Route: 065

REACTIONS (1)
  - Hypoxia [Recovering/Resolving]
